FAERS Safety Report 21103913 (Version 1)
Quarter: 2022Q3

REPORT INFORMATION
  Report Type: Spontaneous
  Country: US (occurrence: US)
  Receive Date: 20220720
  Receipt Date: 20220720
  Transmission Date: 20221026
  Serious: Yes (Other)
  Sender: FDA-Public Use
  Company Number: US-NOVARTISTESTPH-NVSC2022US160669

PATIENT
  Sex: Female

DRUGS (2)
  1. COSENTYX [Suspect]
     Active Substance: SECUKINUMAB
     Indication: Psoriasis
     Dosage: 2 DOSAGE FORM, QW (5 WEEKS 2 SHOTS A WEEK)
     Route: 065
  2. COSENTYX [Suspect]
     Active Substance: SECUKINUMAB
     Indication: Psoriatic arthropathy
     Dosage: 2 DOSAGE FORM, QMO (NOW 2 SHOTS ONCE A MONTH)
     Route: 065

REACTIONS (3)
  - Psoriatic arthropathy [Unknown]
  - Pain [Unknown]
  - Therapeutic product effect incomplete [Unknown]
